FAERS Safety Report 5921001-8 (Version None)
Quarter: 2008Q4

REPORT INFORMATION
  Report Type: 
  Country: None (occurrence: None)
  Receive Date: 20081016
  Receipt Date: 20081008
  Transmission Date: 20090506
  Serious: Yes (Other)
  Sender: FDA-Public Use
  Company Number: US-PURDUE-USA_2008_0034848

PATIENT
  Sex: Male

DRUGS (11)
  1. OXYCONTIN [Suspect]
     Indication: DRUG USE FOR UNKNOWN INDICATION
     Route: 048
     Dates: start: 20050101
  2. DILAUDID [Suspect]
     Indication: DRUG USE FOR UNKNOWN INDICATION
     Dosage: 2 MG, TID
     Route: 048
     Dates: start: 20060101
  3. KLONOPIN [Suspect]
     Indication: DRUG USE FOR UNKNOWN INDICATION
     Dosage: UNK, SEE TEXT
     Route: 048
     Dates: start: 20050601, end: 20070101
  4. SOMA [Suspect]
     Indication: MUSCLE SPASMS
     Dates: start: 20040101, end: 20070101
  5. ACTIQ [Suspect]
     Indication: NECK PAIN
     Dosage: UNK, SEE TEXT
     Dates: start: 20050701, end: 20061001
  6. AMBIEN [Concomitant]
  7. SUBUTEX [Concomitant]
  8. MARIJUANA [Concomitant]
  9. COCAINE [Suspect]
     Indication: DRUG ABUSE
  10. HEROIN [Suspect]
     Indication: DRUG ABUSE
  11. ATIVAN [Concomitant]

REACTIONS (9)
  - DENTAL CARIES [None]
  - DRY MOUTH [None]
  - GINGIVAL INFECTION [None]
  - MENTAL DISORDER DUE TO A GENERAL MEDICAL CONDITION [None]
  - SUBSTANCE ABUSE [None]
  - TOOTH FRACTURE [None]
  - TOOTH INFECTION [None]
  - TOOTH LOSS [None]
  - TOOTHACHE [None]
